FAERS Safety Report 11220139 (Version 2)
Quarter: 2015Q3

REPORT INFORMATION
  Report Type: Report from Study
  Country: US (occurrence: US)
  Receive Date: 20150625
  Receipt Date: 20150831
  Transmission Date: 20151125
  Serious: Yes (Other)
  Sender: FDA-Public Use
  Company Number: US-GILEAD-2015-0160166

PATIENT
  Age: 7 Year
  Sex: Female

DRUGS (3)
  1. AMBRISENTAN [Suspect]
     Active Substance: AMBRISENTAN
     Indication: CARDIAC DISORDER
  2. AMBRISENTAN [Suspect]
     Active Substance: AMBRISENTAN
     Indication: TRISOMY 21
     Dosage: 5 MG, QD
     Route: 065
     Dates: start: 20150401
  3. REVATIO [Concomitant]
     Active Substance: SILDENAFIL CITRATE

REACTIONS (4)
  - Respiratory tract infection [Unknown]
  - Pyrexia [Unknown]
  - Off label use [Unknown]
  - Oxygen saturation decreased [Unknown]
